FAERS Safety Report 9303018 (Version 1)
Quarter: 2013Q2

REPORT INFORMATION
  Report Type: Spontaneous
  Country: JP (occurrence: JP)
  Receive Date: 20130522
  Receipt Date: 20130522
  Transmission Date: 20140414
  Serious: Yes (Other)
  Sender: FDA-Public Use
  Company Number: JP-PFIZER INC-2013155814

PATIENT
  Sex: Female

DRUGS (4)
  1. LYRICA [Suspect]
     Indication: FIBROMYALGIA
     Route: 048
  2. TRAMCET [Concomitant]
     Route: 048
  3. RIVOTRIL [Concomitant]
     Route: 048
  4. REGNITE [Concomitant]
     Route: 048

REACTIONS (8)
  - Cardiac valve disease [Unknown]
  - Dizziness [Unknown]
  - Fall [Unknown]
  - Lumbar vertebral fracture [Unknown]
  - Spinal fracture [Unknown]
  - Extrasystoles [Unknown]
  - Abdominal pain [Unknown]
  - Gastritis [Unknown]
